FAERS Safety Report 22781760 (Version 6)
Quarter: 2024Q1

REPORT INFORMATION
  Report Type: Report from Study
  Country: ZA (occurrence: ZA)
  Receive Date: 20230803
  Receipt Date: 20240111
  Transmission Date: 20240409
  Serious: Yes (Hospitalization, Other)
  Sender: FDA-Public Use
  Company Number: ZA-002147023-NVSC2023ZA167397

PATIENT
  Age: 31 Year
  Sex: Female

DRUGS (4)
  1. OFATUMUMAB [Suspect]
     Active Substance: OFATUMUMAB
     Indication: Relapsing-remitting multiple sclerosis
     Dosage: 20 MG, QMO
     Route: 058
     Dates: start: 20230525
  2. OFATUMUMAB [Suspect]
     Active Substance: OFATUMUMAB
     Indication: Multiple sclerosis
     Dosage: UNK
     Route: 058
     Dates: start: 202306
  3. OFATUMUMAB [Suspect]
     Active Substance: OFATUMUMAB
     Dosage: UNK
     Route: 058
     Dates: start: 202307
  4. OFATUMUMAB [Suspect]
     Active Substance: OFATUMUMAB
     Dosage: 20 MG, QMO
     Route: 058

REACTIONS (20)
  - Bladder discomfort [Unknown]
  - Movement disorder [Unknown]
  - Memory impairment [Unknown]
  - Epilepsy [Unknown]
  - Multiple sclerosis relapse [Unknown]
  - Paraesthesia [Recovering/Resolving]
  - Dizziness [Recovering/Resolving]
  - Headache [Recovering/Resolving]
  - Back pain [Unknown]
  - Balance disorder [Unknown]
  - Fatigue [Unknown]
  - Polycystic ovarian syndrome [Unknown]
  - Visual impairment [Unknown]
  - Muscular weakness [Unknown]
  - Limb discomfort [Unknown]
  - Hypoaesthesia [Unknown]
  - Fluid retention [Unknown]
  - Photophobia [Unknown]
  - Wrong technique in product usage process [Unknown]
  - Therapeutic product effect incomplete [Unknown]
